FAERS Safety Report 6143007-9 (Version None)
Quarter: 2009Q2

REPORT INFORMATION
  Report Type: 
  Country: None (occurrence: None)
  Receive Date: 20090403
  Receipt Date: 20090326
  Transmission Date: 20091009
  Serious: No
  Sender: FDA-Public Use
  Company Number: FR-ELI_LILLY_AND_COMPANY-FR200812005379

PATIENT
  Age: 51 Year
  Sex: Male
  Weight: 74 kg

DRUGS (6)
  1. CIALIS [Suspect]
     Indication: ERECTILE DYSFUNCTION
     Dosage: 2.5 MG, DAILY (1/D)
     Route: 048
     Dates: start: 20081209, end: 20081211
  2. CIALIS [Suspect]
     Dosage: UNK, UNKNOWN
     Route: 065
  3. HUMIRA [Concomitant]
     Indication: RHEUMATIC FEVER
     Dosage: UNK, UNKNOWN
     Route: 065
  4. TAREG [Concomitant]
     Indication: HYPERTENSION
     Dosage: UNK, UNKNOWN
     Route: 065
  5. SPECIAFOLDINE [Concomitant]
     Dosage: UNK, UNKNOWN
     Route: 065
  6. METOJECT [Concomitant]
     Dosage: UNK, UNKNOWN
     Route: 050

REACTIONS (3)
  - CHALAZION [None]
  - CONJUNCTIVITIS [None]
  - VISION BLURRED [None]
